FAERS Safety Report 18528814 (Version 3)
Quarter: 2021Q1

REPORT INFORMATION
  Report Type: Report from Study
  Country: CA (occurrence: CA)
  Receive Date: 20201120
  Receipt Date: 20210114
  Transmission Date: 20210419
  Serious: Yes (Other)
  Sender: FDA-Public Use
  Company Number: CA-TAKEDA-2020TUS005782

PATIENT
  Age: 71 Year
  Sex: Female

DRUGS (6)
  1. IXAZOMIB [Suspect]
     Active Substance: IXAZOMIB
     Indication: PLASMA CELL MYELOMA
     Dosage: 4 MILLIGRAM
     Route: 048
     Dates: start: 20190304, end: 20201221
  2. IXAZOMIB [Suspect]
     Active Substance: IXAZOMIB
     Dosage: 2.3 MILLIGRAM
     Route: 048
  3. IXAZOMIB [Suspect]
     Active Substance: IXAZOMIB
     Dosage: 3 MILLIGRAM
     Route: 048
  4. DEXAMETHASONE. [Concomitant]
     Active Substance: DEXAMETHASONE
     Dosage: UNK
     Route: 065
  5. LENALIDOMIDE [Concomitant]
     Active Substance: LENALIDOMIDE
     Dosage: UNK
     Route: 065
  6. ASA [Concomitant]
     Active Substance: ASPIRIN
     Dosage: 81 MILLIGRAM
     Route: 065

REACTIONS (7)
  - Muscle spasms [Unknown]
  - White blood cell count decreased [Unknown]
  - Diarrhoea [Unknown]
  - Laboratory test abnormal [Unknown]
  - Cytopenia [Unknown]
  - Neutrophil count decreased [Unknown]
  - Platelet count decreased [Unknown]
